FAERS Safety Report 9403738 (Version 1)
Quarter: 2013Q3

REPORT INFORMATION
  Report Type: Spontaneous
  Country: US (occurrence: None)
  Receive Date: 20130715
  Receipt Date: 20130715
  Transmission Date: 20140515
  Serious: Yes (Hospitalization)
  Sender: FDA-Public Use
  Company Number: None

PATIENT
  Age: 64 Year
  Sex: Female
  Weight: 55 kg

DRUGS (2)
  1. CYTARABINE [Suspect]
     Dates: end: 20130707
  2. DAUNORUBICIN [Suspect]
     Dates: end: 20130705

REACTIONS (21)
  - Disseminated intravascular coagulation [None]
  - Condition aggravated [None]
  - Infection [None]
  - Capillary leak syndrome [None]
  - Tumour lysis syndrome [None]
  - Acute respiratory distress syndrome [None]
  - Renal injury [None]
  - Sinus tachycardia [None]
  - Haemoptysis [None]
  - Catheter site haemorrhage [None]
  - Ecchymosis [None]
  - Oedema [None]
  - Weight increased [None]
  - Blood pressure increased [None]
  - Blood pressure decreased [None]
  - Respiratory acidosis [None]
  - Fluid overload [None]
  - Periorbital oedema [None]
  - Periorbital haemorrhage [None]
  - Dialysis [None]
  - Mental status changes [None]
